FAERS Safety Report 19773485 (Version 1)
Quarter: 2021Q3

REPORT INFORMATION
  Report Type: Report from Study
  Country: JP (occurrence: JP)
  Receive Date: 20210901
  Receipt Date: 20210901
  Transmission Date: 20211014
  Serious: Yes (Hospitalization, Other)
  Sender: FDA-Public Use
  Company Number: JP-BIOCODEX SA-2021001060

PATIENT

DRUGS (11)
  1. DIACOMIT [Suspect]
     Active Substance: STIRIPENTOL
     Dosage: 250 MG, QD
     Route: 048
     Dates: start: 20140502, end: 20140508
  2. CLOBAZAM. [Concomitant]
     Active Substance: CLOBAZAM
     Dosage: 6 MG, QD
     Route: 048
     Dates: start: 20140502, end: 20140507
  3. CLOBAZAM. [Concomitant]
     Active Substance: CLOBAZAM
     Dosage: 4 MG, QD
     Route: 048
     Dates: start: 20140509
  4. DIACOMIT [Suspect]
     Active Substance: STIRIPENTOL
     Indication: SEVERE MYOCLONIC EPILEPSY OF INFANCY
     Route: 048
     Dates: start: 20140425
  5. CLOBAZAM. [Concomitant]
     Active Substance: CLOBAZAM
     Indication: SEVERE MYOCLONIC EPILEPSY OF INFANCY
     Route: 048
     Dates: end: 20140501
  6. TOPIRAMATE. [Concomitant]
     Active Substance: TOPIRAMATE
     Indication: SEVERE MYOCLONIC EPILEPSY OF INFANCY
     Dosage: 50 MG, QD
     Route: 048
     Dates: end: 20140522
  7. DIACOMIT [Suspect]
     Active Substance: STIRIPENTOL
     Dosage: 326 MG, QD
     Route: 048
     Dates: start: 20140509, end: 20140521
  8. DIACOMIT [Suspect]
     Active Substance: STIRIPENTOL
     Dosage: 400 MG, QD
     Route: 048
     Dates: start: 20140522, end: 20141017
  9. SODIUM VALPROATE [Concomitant]
     Active Substance: VALPROATE SODIUM
     Indication: SEVERE MYOCLONIC EPILEPSY OF INFANCY
     Route: 048
     Dates: end: 20140614
  10. SODIUM VALPROATE [Concomitant]
     Active Substance: VALPROATE SODIUM
     Dosage: 270 MG, QD
     Route: 048
     Dates: start: 20140617, end: 20141225
  11. TOPIRAMATE. [Concomitant]
     Active Substance: TOPIRAMATE
     Dosage: 25 MG, QD
     Route: 048
     Dates: start: 20140523, end: 20140605

REACTIONS (2)
  - Decreased appetite [Recovered/Resolved]
  - Seizure [Recovered/Resolved]

NARRATIVE: CASE EVENT DATE: 20140605
